FAERS Safety Report 16689863 (Version 1)
Quarter: 2019Q3

REPORT INFORMATION
  Report Type: Spontaneous
  Country: CA (occurrence: CA)
  Receive Date: 20190809
  Receipt Date: 20190809
  Transmission Date: 20191004
  Serious: Yes (Hospitalization)
  Sender: FDA-Public Use
  Company Number: CA-TEVA-2019-CA-1088625

PATIENT
  Age: 60 Year
  Sex: Male

DRUGS (2)
  1. NUCALA [Suspect]
     Active Substance: MEPOLIZUMAB
     Indication: PRODUCT USED FOR UNKNOWN INDICATION
     Route: 042
  2. SALBUTAMOL [Suspect]
     Active Substance: ALBUTEROL
     Indication: PRODUCT USED FOR UNKNOWN INDICATION
     Route: 065

REACTIONS (6)
  - Lung disorder [Recovered/Resolved]
  - Drug ineffective [Recovered/Resolved]
  - Oxygen saturation decreased [Recovered/Resolved]
  - Blood pressure increased [Recovered/Resolved]
  - Dyspnoea [Recovered/Resolved]
  - Nasopharyngitis [Recovered/Resolved]
